FAERS Safety Report 10331009 (Version 1)
Quarter: 2014Q3

REPORT INFORMATION
  Report Type: Not Available
  Country: GB (occurrence: GB)
  Receive Date: 20140722
  Receipt Date: 20140722
  Transmission Date: 20150326
  Serious: Yes (Other)
  Sender: FDA-Public Use
  Company Number: GB-MUNDIPHARMA DS AND PHARMACOVIGILANCE-GBR-2014-0019463

PATIENT
  Age: 51 Year
  Sex: Male
  Weight: 85.72 kg

DRUGS (6)
  1. AMOXICILLIN. [Interacting]
     Active Substance: AMOXICILLIN
     Indication: LOWER RESPIRATORY TRACT INFECTION
     Dosage: UNK
     Route: 065
  2. CLOPIDOGREL [Concomitant]
     Active Substance: CLOPIDOGREL BISULFATE
     Route: 065
  3. SALBUTAMOL [Concomitant]
     Active Substance: ALBUTEROL
     Route: 065
  4. PARACETAMOL [Concomitant]
     Active Substance: ACETAMINOPHEN
     Route: 065
  5. ORAMORPH SR SUSTAINED RELEASE [Concomitant]
     Active Substance: MORPHINE SULFATE
     Route: 065
  6. MXL CAPSULES [Suspect]
     Active Substance: MORPHINE
     Indication: PAIN
     Dosage: 60 MG, DAILY
     Route: 048
     Dates: start: 200707

REACTIONS (4)
  - Muscle twitching [Recovering/Resolving]
  - Sleep disorder [Recovering/Resolving]
  - Neuralgia [Recovering/Resolving]
  - Inhibitory drug interaction [Recovering/Resolving]

NARRATIVE: CASE EVENT DATE: 20140618
